FAERS Safety Report 5258450-X (Version None)
Quarter: 2007Q1

REPORT INFORMATION
  Report Type: 
  Country: None (occurrence: None)
  Receive Date: 20070308
  Receipt Date: 20070226
  Transmission Date: 20070707
  Serious: Yes (Hospitalization)
  Sender: FDA-Public Use
  Company Number: IT-ELI_LILLY_AND_COMPANY-IT200703000708

PATIENT
  Age: 52 Year
  Sex: Female

DRUGS (4)
  1. ZYPREXA [Suspect]
     Dosage: 1 D/F, DAILY (1/D)
     Dates: start: 20061001
  2. HALDOL [Concomitant]
     Dosage: 4 GTT, DAILY (1/D)
     Route: 048
     Dates: start: 20061001
  3. BIPERIDEN HYDROCHLORIDE TAB [Concomitant]
     Dosage: 1 D/F, DAILY (1/D)
     Dates: start: 20050501
  4. FROBEN [Concomitant]
     Dates: start: 20070124, end: 20070127

REACTIONS (1)
  - COLITIS ISCHAEMIC [None]
